FAERS Safety Report 6776026-X (Version None)
Quarter: 2010Q2

REPORT INFORMATION
  Report Type: 
  Country: None (occurrence: None)
  Receive Date: 20100615
  Receipt Date: 20100531
  Transmission Date: 20101027
  Serious: Yes (Other)
  Sender: FDA-Public Use
  Company Number: AUR-APL-2010-01313

PATIENT
  Age: 80 Year
  Sex: Female

DRUGS (5)
  1. LEVETIRACETAM [Suspect]
     Indication: CONVULSION
     Dosage: 1000MG, BID, ORAL
     Route: 048
  2. LEVOTHYROXINE SODIUM [Concomitant]
  3. AMLODIPINE [Concomitant]
  4. TELMISARTAN [Concomitant]
  5. SERTRALINE HCL [Concomitant]

REACTIONS (9)
  - COGNITIVE DISORDER [None]
  - CONFUSIONAL STATE [None]
  - DELIRIUM [None]
  - DEPRESSED LEVEL OF CONSCIOUSNESS [None]
  - DISTURBANCE IN ATTENTION [None]
  - IMPAIRED SELF-CARE [None]
  - MENTAL STATUS CHANGES [None]
  - POVERTY OF THOUGHT CONTENT [None]
  - SPEECH DISORDER [None]
